FAERS Safety Report 4369161-7 (Version None)
Quarter: 2004Q2

REPORT INFORMATION
  Report Type: 
  Country: None (occurrence: None)
  Receive Date: 20040527
  Receipt Date: 20040303
  Transmission Date: 20050107
  Serious: Yes (Hospitalization, Other)
  Sender: FDA-Public Use
  Company Number: USA040260305

PATIENT
  Age: 54 Year
  Sex: Male

DRUGS (11)
  1. CIALIS [Suspect]
     Dosage: 20 MG
     Dates: start: 20040222
  2. TENORMIN [Concomitant]
  3. LISINOPRIL [Concomitant]
  4. PREVACID [Concomitant]
  5. EFFEXOR [Concomitant]
  6. CLONAZEPAM [Concomitant]
  7. PROVIGIL [Concomitant]
  8. SINEMET [Concomitant]
  9. AMANTADINE HCL [Concomitant]
  10. MIRAPEX (MIRAPEX) [Concomitant]
  11. DARVOCET-N 100 [Concomitant]

REACTIONS (5)
  - BRONCHITIS [None]
  - CORONARY ARTERY OCCLUSION [None]
  - FLUSHING [None]
  - GASTRITIS [None]
  - MYOCARDIAL INFARCTION [None]
